FAERS Safety Report 25535799 (Version 1)
Quarter: 2025Q3

REPORT INFORMATION
  Report Type: Other
  Country: CN (occurrence: CN)
  Receive Date: 20250709
  Receipt Date: 20250709
  Transmission Date: 20251021
  Serious: Yes (Life-Threatening, Other)
  Sender: Evive Biotechnology
  Company Number: CN-EVIVE BIOTECHNOLOGY SINGAPORE PTE. LTD.-EVI-CN-2025-000036

PATIENT
  Age: 33 Year
  Sex: Female

DRUGS (2)
  1. RYZNEUTA [Suspect]
     Active Substance: EFBEMALENOGRASTIM ALFA-VUXW
     Indication: Neutropenia
     Dosage: 20 MILLIGRAM, QD
     Route: 058
     Dates: start: 20250620, end: 20250620
  2. DOCETAXEL [Suspect]
     Active Substance: DOCETAXEL
     Indication: Breast cancer
     Dates: start: 20250618

REACTIONS (4)
  - Chest discomfort [Recovering/Resolving]
  - Dyspnoea [Recovering/Resolving]
  - Palpitations [Recovering/Resolving]
  - Nausea [Recovering/Resolving]

NARRATIVE: CASE EVENT DATE: 20250620
